FAERS Safety Report 22383300 (Version 1)
Quarter: 2023Q2

REPORT INFORMATION
  Report Type: Spontaneous
  Country: US (occurrence: None)
  Receive Date: 20230526
  Receipt Date: 20230526
  Transmission Date: 20230721
  Serious: Yes (Hospitalization)
  Sender: FDA-Public Use
  Company Number: None

PATIENT
  Age: 20 Year
  Sex: Male
  Weight: 75.9 kg

DRUGS (4)
  1. CLOZAPINE [Suspect]
     Active Substance: CLOZAPINE
     Indication: Schizophrenia
     Dates: start: 20230424, end: 20230521
  2. SERTRALINE [Concomitant]
     Active Substance: SERTRALINE HYDROCHLORIDE
     Dates: start: 20230111
  3. ARIPIPRAZOLE [Concomitant]
     Active Substance: ARIPIPRAZOLE
     Dates: start: 20230208
  4. RISPERIDONE [Concomitant]
     Active Substance: RISPERIDONE
     Dates: start: 20230405

REACTIONS (11)
  - Acute generalised exanthematous pustulosis [None]
  - Meningitis [None]
  - Pyrexia [None]
  - Chills [None]
  - Musculoskeletal stiffness [None]
  - Rash [None]
  - Aspartate aminotransferase increased [None]
  - Alanine aminotransferase increased [None]
  - Blood bilirubin increased [None]
  - Face oedema [None]
  - Periorbital oedema [None]

NARRATIVE: CASE EVENT DATE: 20230521
